FAERS Safety Report 8618628-1 (Version None)
Quarter: 2012Q3

REPORT INFORMATION
  Report Type: 
  Country: None (occurrence: None)
  Receive Date: 20120814
  Receipt Date: 20120814
  Transmission Date: 20120928
  Serious: Yes (Hospitalization, Other)
  Sender: FDA-Public Use
  Company Number: None

PATIENT
  Age: 65 Year
  Sex: Female
  Weight: 64.4108 kg

DRUGS (1)
  1. LIMBREL 500 PRIMUS PHARMACEUTICALS [Suspect]
     Indication: OSTEOARTHRITIS
     Dosage: ONE, TWICE DAILY
     Dates: start: 20120424, end: 20120618

REACTIONS (2)
  - DECREASED APPETITE [None]
  - PNEUMONIA [None]
